FAERS Safety Report 7154253-X (Version None)
Quarter: 2010Q4

REPORT INFORMATION
  Report Type: 
  Country: None (occurrence: None)
  Receive Date: 20101213
  Receipt Date: 20101201
  Transmission Date: 20110411
  Serious: Yes (Hospitalization, Other)
  Sender: FDA-Public Use
  Company Number: US-ROCHE-724566

PATIENT
  Sex: Male
  Weight: 88.5 kg

DRUGS (2)
  1. ACCUTANE [Suspect]
     Indication: ACNE
     Route: 048
     Dates: start: 20000828, end: 20001213
  2. ACCUTANE [Suspect]
     Route: 048
     Dates: start: 20011016, end: 20020101

REACTIONS (14)
  - ARTHRITIS [None]
  - BLOOD ALKALINE PHOSPHATASE INCREASED [None]
  - BLOOD GLUCOSE DECREASED [None]
  - BLOOD TRIGLYCERIDES INCREASED [None]
  - CHEST DISCOMFORT [None]
  - COLITIS ULCERATIVE [None]
  - CROHN'S DISEASE [None]
  - DYSPNOEA [None]
  - ERYTHEMA NODOSUM [None]
  - GASTROINTESTINAL INJURY [None]
  - INFLAMMATORY BOWEL DISEASE [None]
  - LUMBAR RADICULOPATHY [None]
  - PILONIDAL CYST [None]
  - RHINORRHOEA [None]
